FAERS Safety Report 9729763 (Version 1)
Quarter: 2013Q4

REPORT INFORMATION
  Report Type: Spontaneous
  Country: GB (occurrence: GB)
  Receive Date: 20131204
  Receipt Date: 20131204
  Transmission Date: 20140711
  Serious: Yes (Hospitalization, Congenital Anomaly, Other)
  Sender: FDA-Public Use
  Company Number: GB-JNJFOC-20131112882

PATIENT
  Sex: Male
  Weight: 3.4 kg

DRUGS (15)
  1. RISPERDAL [Suspect]
     Indication: SCHIZOPHRENIA, PARANOID TYPE
     Route: 064
     Dates: start: 20120308, end: 20120609
  2. RISPERDAL [Suspect]
     Indication: SCHIZOPHRENIA, PARANOID TYPE
     Route: 064
     Dates: start: 20120221, end: 20120307
  3. RISPERDAL [Suspect]
     Indication: SCHIZOPHRENIA, PARANOID TYPE
     Route: 064
     Dates: start: 20120609, end: 20120821
  4. HALOPERIDOL [Suspect]
     Indication: SCHIZOPHRENIA, PARANOID TYPE
     Route: 064
     Dates: start: 20111229, end: 20120104
  5. HALOPERIDOL [Suspect]
     Indication: SCHIZOPHRENIA, PARANOID TYPE
     Route: 064
     Dates: start: 20120105, end: 20120109
  6. PROMETHAZINE [Suspect]
     Indication: PRODUCT USED FOR UNKNOWN INDICATION
     Route: 064
     Dates: start: 20111216
  7. SENNA [Suspect]
     Indication: PRODUCT USED FOR UNKNOWN INDICATION
     Route: 064
     Dates: start: 20120116
  8. CYCLIZINE [Suspect]
     Indication: PRODUCT USED FOR UNKNOWN INDICATION
     Route: 064
     Dates: start: 20111228, end: 20120131
  9. CHLORPROMAZINE [Suspect]
     Indication: SCHIZOPHRENIA, PARANOID TYPE
     Route: 064
     Dates: start: 20120109, end: 20120114
  10. CHLORPROMAZINE [Suspect]
     Indication: SCHIZOPHRENIA, PARANOID TYPE
     Route: 064
     Dates: start: 20111215, end: 20111219
  11. ZOPICLONE [Suspect]
     Indication: INSOMNIA
     Route: 064
     Dates: start: 20120210, end: 20120718
  12. ALCOHOL [Suspect]
     Indication: PRODUCT USED FOR UNKNOWN INDICATION
     Route: 064
  13. ENTONOX [Suspect]
     Indication: ANALGESIC THERAPY
     Route: 064
     Dates: start: 20120718, end: 20120718
  14. SYNTOMETRINE [Suspect]
     Indication: PRODUCT USED FOR UNKNOWN INDICATION
     Dosage: 1 AMP
     Route: 064
     Dates: start: 20120718, end: 20120718
  15. OLANZAPINE [Suspect]
     Indication: PRODUCT USED FOR UNKNOWN INDICATION
     Route: 064
     Dates: start: 20120112, end: 20120114

REACTIONS (5)
  - Foetal exposure during pregnancy [Recovered/Resolved]
  - Foetal alcohol syndrome [Unknown]
  - Dextrocardia [Unknown]
  - Visual impairment [Unknown]
  - Drug withdrawal syndrome [Unknown]
